FAERS Safety Report 8915190 (Version 1)
Quarter: 2012Q4

REPORT INFORMATION
  Report Type: 
  Country: US (occurrence: US)
  Receive Date: 20121119
  Receipt Date: 20121119
  Transmission Date: 20130627
  Serious: Yes (Other)
  Sender: FDA-Public Use
  Company Number: US-PFIZER INC-2012288451

PATIENT
  Age: 36 Year
  Sex: Female
  Weight: 54.42 kg

DRUGS (8)
  1. CHANTIX [Suspect]
     Indication: SMOKING CESSATION THERAPY
     Dosage: 0.5 mg, 2x/day
     Route: 048
     Dates: start: 20121030, end: 2012
  2. CHANTIX [Suspect]
     Dosage: 1 mg, 2x/day
     Route: 048
     Dates: start: 2012
  3. CLONAZEPAM [Suspect]
     Indication: SHAKING
     Dosage: 1 mg, 3x/day
  4. CLONAZEPAM [Suspect]
     Indication: ANXIETY
  5. CLONAZEPAM [Suspect]
     Indication: NERVE DAMAGE
  6. ESTRADIOL [Concomitant]
     Indication: HYSTERECTOMY
     Dosage: 2 mg, daily
  7. BC [Concomitant]
     Indication: HEADACHE
     Dosage: UNK
  8. VITAMIN D [Concomitant]
     Indication: VITAMIN D DEFICIENCY
     Dosage: UNK

REACTIONS (9)
  - Physical assault [Unknown]
  - Somnambulism [Unknown]
  - Agitation [Not Recovered/Not Resolved]
  - Anger [Not Recovered/Not Resolved]
  - Vomiting [Unknown]
  - Nausea [Not Recovered/Not Resolved]
  - Weight increased [Unknown]
  - Tremor [Unknown]
  - Memory impairment [Unknown]
